FAERS Safety Report 7591635-6 (Version None)
Quarter: 2011Q3

REPORT INFORMATION
  Report Type: 
  Country: None (occurrence: None)
  Receive Date: 20110706
  Receipt Date: 20071211
  Transmission Date: 20111222
  Serious: Yes (Hospitalization, Other)
  Sender: FDA-Public Use
  Company Number: US-BAYER-200716093NA

PATIENT
  Age: 62 Year
  Sex: Female
  Weight: 47 kg

DRUGS (13)
  1. PROPOFOL [Concomitant]
     Dosage: 60 CC
     Route: 042
     Dates: start: 20040917, end: 20040917
  2. TRASYLOL [Suspect]
     Dosage: 25 ML/HOUR INFUSION
     Dates: start: 20040917, end: 20040917
  3. TRASYLOL [Suspect]
     Dosage: 50 ML/HOUR INFUSION
     Route: 042
     Dates: start: 20040917, end: 20040917
  4. ESTRADIOL [Concomitant]
     Dosage: 1 MG, QD
     Route: 048
  5. TRASYLOL [Suspect]
     Indication: MITRAL VALVE REPAIR
     Dosage: 1 ML, ONCE, TEST DOSE
     Route: 042
     Dates: start: 20040917, end: 20040917
  6. LASIX [Concomitant]
     Dosage: UNK UNK, QD
     Route: 048
  7. HEPARIN [Concomitant]
     Dosage: UNK
     Route: 042
     Dates: start: 20040917
  8. NATRECOR [Concomitant]
     Dosage: UNK
     Route: 042
     Dates: start: 20040917
  9. VANCOMYCIN [Concomitant]
     Dosage: UNK
     Route: 042
     Dates: start: 20040917
  10. ZINACEF [Concomitant]
     Dosage: UNK
     Route: 042
     Dates: start: 20040917
  11. PROTAMINE SULFATE [Concomitant]
     Dosage: UNK
     Route: 042
     Dates: start: 20040917
  12. TRASYLOL [Suspect]
     Dosage: 100 ML LOADING DOSE
     Route: 042
     Dates: start: 20040917, end: 20040917
  13. CONTRAST MEDIA [Concomitant]
     Indication: CATHETERISATION CARDIAC
     Dosage: UNK
     Dates: start: 20040909

REACTIONS (6)
  - RENAL FAILURE ACUTE [None]
  - EMOTIONAL DISTRESS [None]
  - ASTHENIA [None]
  - PAIN [None]
  - RENAL IMPAIRMENT [None]
  - INJURY [None]
